FAERS Safety Report 11073452 (Version 1)
Quarter: 2015Q2

REPORT INFORMATION
  Report Type: Spontaneous
  Country: US (occurrence: US)
  Receive Date: 20150428
  Receipt Date: 20150428
  Transmission Date: 20150821
  Serious: No
  Sender: FDA-Public Use
  Company Number: US-PFIZER INC-2015139097

PATIENT
  Sex: Female

DRUGS (1)
  1. AVINZA [Suspect]
     Active Substance: MORPHINE SULFATE
     Dosage: UNK

REACTIONS (4)
  - Neuralgia [Unknown]
  - Skin burning sensation [Unknown]
  - Drug withdrawal syndrome [Unknown]
  - Muscle tightness [Unknown]
